FAERS Safety Report 7963834-2 (Version None)
Quarter: 2011Q4

REPORT INFORMATION
  Report Type: 
  Country: None (occurrence: None)
  Receive Date: 20111205
  Receipt Date: 20111121
  Transmission Date: 20120403
  Serious: Yes (Other)
  Sender: FDA-Public Use
  Company Number: 1000025804

PATIENT
  Age: 57 Year

DRUGS (7)
  1. ROFLUMILAST (ROFLUMILAST) (500 MICROGRAM, TABLETS) [Suspect]
     Indication: ASTHMA
     Dosage: 500 MCG (500 MCG, 1 IN 1 D), ORAL
     Route: 048
     Dates: start: 20111111, end: 20111118
  2. RILAST (BUDESONIDE, FORMOTEROL FUMARATE) (INHALANT) (BUDESONIDE, FORMO [Concomitant]
  3. LORATADINA (LORATADINE) (LORATADINE) [Concomitant]
  4. VENTOLIN (SALBUTAMOL) (INHALLANT) (SALBUTAMOL) [Concomitant]
  5. CLARITROMICINA TEVA (CLARITHROMYCIN0 (CLARITHROMYCIN) [Concomitant]
  6. DEFLAZACORT (DEFLAZACORT) (DEFLAZACORT) [Concomitant]
  7. LORAZEPAM [Concomitant]

REACTIONS (11)
  - BLOOD PRESSURE INCREASED [None]
  - MYALGIA [None]
  - DIARRHOEA [None]
  - WEIGHT DECREASED [None]
  - TREMOR [None]
  - OFF LABEL USE [None]
  - FATIGUE [None]
  - BONE PAIN [None]
  - MUSCLE SPASMS [None]
  - INSOMNIA [None]
  - DIZZINESS [None]
